FAERS Safety Report 15074168 (Version 1)
Quarter: 2018Q2

REPORT INFORMATION
  Report Type: Spontaneous
  Country: US (occurrence: US)
  Receive Date: 20180606
  Receipt Date: 20180606
  Transmission Date: 20180711
  Serious: Yes (Other)
  Sender: FDA-Public Use
  Company Number: None

PATIENT
  Age: 68 Year
  Sex: Male
  Weight: 83.25 kg

DRUGS (9)
  1. GENVOYA [Concomitant]
     Active Substance: COBICISTAT\ELVITEGRAVIR\EMTRICITABINE\TENOFOVIR ALAFENAMIDE FUMARATE
  2. PRAVASTATIN. [Concomitant]
     Active Substance: PRAVASTATIN
  3. LOSARTIN [Concomitant]
     Active Substance: LOSARTAN
  4. ZYRTEC [Concomitant]
     Active Substance: CETIRIZINE HYDROCHLORIDE
  5. SELSUN BLUE ITCHY DRY SCALP [Suspect]
     Active Substance: PYRITHIONE ZINC
     Indication: TINEA VERSICOLOUR
     Route: 058
     Dates: start: 20171116, end: 20180604
  6. SUDOGEST [Concomitant]
     Active Substance: PSEUDOEPHEDRINE HYDROCHLORIDE
  7. VIT. D3 [Concomitant]
  8. TERAZIOSIN [Concomitant]
  9. MULTI-VIT [Concomitant]
     Active Substance: VITAMINS

REACTIONS (7)
  - Product use in unapproved indication [None]
  - Application site erythema [None]
  - Application site swelling [None]
  - Application site pain [None]
  - Blister [None]
  - Product use issue [None]
  - Application site rash [None]

NARRATIVE: CASE EVENT DATE: 20180604
